FAERS Safety Report 19298913 (Version 1)
Quarter: 2021Q2

REPORT INFORMATION
  Report Type: Other
  Country: DE (occurrence: DE)
  Receive Date: 20210525
  Receipt Date: 20210525
  Transmission Date: 20210717
  Serious: Yes (Other)
  Sender: FDA-Public Use
  Company Number: DE-MACLEODS PHARMA UK LTD-MAC2021031213

PATIENT

DRUGS (3)
  1. RIVOTRIL [Suspect]
     Active Substance: CLONAZEPAM
     Indication: PRODUCT USED FOR UNKNOWN INDICATION
     Dosage: UMK, TID, 1.25 MILLIGRAM (0.5?0.5?0.25) FIRST TRIMESTER, 0?39.1 GESTATIONAL WEEK
     Route: 064
     Dates: start: 20200116, end: 20201016
  2. RISPERIDONE. [Concomitant]
     Active Substance: RISPERIDONE
     Indication: TOURETTE^S DISORDER
     Dosage: 1 MILLIGRAM, QD, FIRTS TRIMESTER, 0?10 GESTATIONAL WEEK
     Route: 064
     Dates: start: 20200116, end: 20200326
  3. ARIPIPRAZOLE  20 MG [Suspect]
     Active Substance: ARIPIPRAZOLE
     Indication: PRODUCT USED FOR UNKNOWN INDICATION
     Dosage: 20 MILLIGRAM, QD, FIRST TRIMESTER, 0?39.1 GESTATIONAL WEEK
     Route: 064
     Dates: start: 20200116, end: 20201016

REACTIONS (3)
  - Small for dates baby [Unknown]
  - Foetal exposure during pregnancy [Unknown]
  - Congenital inguinal hernia [Unknown]

NARRATIVE: CASE EVENT DATE: 20201016
